FAERS Safety Report 17871356 (Version 5)
Quarter: 2020Q4

REPORT INFORMATION
  Report Type: Report from Study
  Country: JP (occurrence: JP)
  Receive Date: 20200608
  Receipt Date: 20201208
  Transmission Date: 20210113
  Serious: Yes (Disabling)
  Sender: FDA-Public Use
  Company Number: JP-PFIZER INC-2020219061

PATIENT
  Age: 7 Decade
  Sex: Male
  Weight: 58 kg

DRUGS (6)
  1. XELJANZ [Suspect]
     Active Substance: TOFACITINIB CITRATE
     Indication: RHEUMATOID ARTHRITIS
     Dosage: 5 MG, 2X/DAY
     Dates: start: 20170510, end: 20190910
  2. MOBIC [Concomitant]
     Active Substance: MELOXICAM
     Dosage: UNK
     Route: 048
     Dates: start: 20171025
  3. PARIET [Concomitant]
     Active Substance: RABEPRAZOLE SODIUM
     Route: 048
  4. LOXOPROFEN [Concomitant]
     Active Substance: LOXOPROFEN
     Route: 048
  5. FOLIAMIN [Concomitant]
     Active Substance: FOLIC ACID
     Dosage: UNK
     Route: 048
     Dates: end: 20190910
  6. RHEUMATREX [Suspect]
     Active Substance: METHOTREXATE SODIUM
     Indication: RHEUMATOID ARTHRITIS
     Dosage: 8 MG, WEEKLY
     Dates: end: 20190910

REACTIONS (2)
  - Viral uveitis [Recovering/Resolving]
  - Epstein-Barr virus infection [Recovering/Resolving]

NARRATIVE: CASE EVENT DATE: 20190902
